FAERS Safety Report 9668379 (Version 2)
Quarter: 2014Q2

REPORT INFORMATION
  Report Type: Spontaneous
  Country: JP (occurrence: JP)
  Receive Date: 20131104
  Receipt Date: 20140429
  Transmission Date: 20141212
  Serious: Yes (Hospitalization, Other)
  Sender: FDA-Public Use
  Company Number: JP-TAKEDA-2013TJP002412

PATIENT
  Age: 80 Year
  Sex: Male

DRUGS (2)
  1. ACTOS TABLETS 30 [Suspect]
     Indication: DIABETES MELLITUS
     Dosage: 30 MG,1 DAY
     Route: 048
  2. GLACTIV [Concomitant]
     Dosage: 50 MG, 1 DAY
     Route: 048

REACTIONS (1)
  - Interstitial lung disease [Not Recovered/Not Resolved]
